FAERS Safety Report 4402141-1 (Version None)
Quarter: 2004Q3

REPORT INFORMATION
  Report Type: 
  Country: None (occurrence: None)
  Receive Date: 20040716
  Receipt Date: 20001004
  Transmission Date: 20050211
  Serious: Yes (Hospitalization)
  Sender: FDA-Public Use
  Company Number: 02100-JPN-00-0079

PATIENT
  Age: 61 Year
  Sex: Female

DRUGS (6)
  1. CILOSTAZOL [Suspect]
     Indication: LACUNAR INFARCTION
     Dosage: 200 MG ORAL
     Route: 048
     Dates: start: 20000830, end: 20000902
  2. LOSARTAN POTASSIUM [Concomitant]
  3. INSULIN HUMAN [Concomitant]
  4. BEZAFIBRATE [Concomitant]
  5. EPALRESTAT [Concomitant]
  6. L-ASPARTATE POTASSIUM [Concomitant]

REACTIONS (1)
  - CEREBRAL HAEMORRHAGE [None]
